FAERS Safety Report 18242126 (Version 1)
Quarter: 2020Q3

REPORT INFORMATION
  Report Type: Spontaneous
  Country: US (occurrence: US)
  Receive Date: 20200908
  Receipt Date: 20200908
  Transmission Date: 20201103
  Serious: Yes (Hospitalization)
  Sender: FDA-Public Use
  Company Number: US-MYLANLABS-2020M1076060

PATIENT
  Sex: Female

DRUGS (10)
  1. RISPERIDONE. [Suspect]
     Active Substance: RISPERIDONE
     Indication: BIPOLAR I DISORDER
     Route: 065
  2. CLONAZEPAM. [Suspect]
     Active Substance: CLONAZEPAM
     Indication: TARDIVE DYSKINESIA
     Route: 065
  3. CARIPRAZINE [Suspect]
     Active Substance: CARIPRAZINE
     Indication: BIPOLAR I DISORDER
     Dosage: 1.5 MILLIGRAM, QD
     Route: 048
     Dates: start: 201609, end: 201610
  4. VITAMIN E                          /00110501/ [Suspect]
     Active Substance: TOCOPHEROL
     Indication: TARDIVE DYSKINESIA
     Route: 065
  5. DEUTETRABENAZINE [Suspect]
     Active Substance: DEUTETRABENAZINE
     Dosage: 24 MILLIGRAM, BID, TABLETS WERE CRUSHED AND DISSOLVED IN 10 TO 20 ML OF STERILE WATER
  6. PALIPERIDONE. [Suspect]
     Active Substance: PALIPERIDONE
     Indication: BIPOLAR I DISORDER
     Dosage: UNK, MONTHLY
     Route: 030
  7. QUETIAPINE. [Suspect]
     Active Substance: QUETIAPINE
     Indication: BIPOLAR I DISORDER
     Dosage: 400 MILLIGRAM, BID
     Route: 048
     Dates: start: 201609, end: 201610
  8. ARIPIPRAZOLE. [Suspect]
     Active Substance: ARIPIPRAZOLE
     Indication: BIPOLAR I DISORDER
     Dosage: 10 MILLIGRAM, QD
     Route: 048
     Dates: start: 20181220, end: 20190102
  9. DEUTETRABENAZINE [Suspect]
     Active Substance: DEUTETRABENAZINE
     Indication: TARDIVE DYSKINESIA
     Dosage: 6 MILLIGRAM, BID, TABLETS WERE CRUSHED AND DISSOLVED IN 10 TO 20 ML OF STERILE WATER
  10. ZIPRASIDONE. [Suspect]
     Active Substance: ZIPRASIDONE
     Indication: BIPOLAR I DISORDER
     Dosage: 20 MILLIGRAM, BID
     Route: 048
     Dates: start: 20181209, end: 20181215

REACTIONS (11)
  - Hypernatraemia [Recovered/Resolved]
  - Tardive dyskinesia [Recovered/Resolved]
  - Blood albumin decreased [Recovered/Resolved]
  - Anaemia [Recovered/Resolved]
  - Condition aggravated [Recovered/Resolved]
  - Nutritional condition abnormal [Recovered/Resolved]
  - Aspiration [Recovered/Resolved]
  - Oral administration complication [Recovered/Resolved]
  - Speech disorder [Recovered/Resolved]
  - Dysphagia [Recovered/Resolved]
  - Treatment failure [Unknown]
